FAERS Safety Report 16590929 (Version 4)
Quarter: 2020Q1

REPORT INFORMATION
  Report Type: Spontaneous
  Country: US (occurrence: US)
  Receive Date: 20190718
  Receipt Date: 20200331
  Transmission Date: 20200409
  Serious: Yes (Hospitalization, Other)
  Sender: FDA-Public Use
  Company Number: US-PFIZER INC-2019302890

PATIENT
  Age: 66 Year
  Sex: Male
  Weight: 108 kg

DRUGS (1)
  1. XELJANZ XR [Suspect]
     Active Substance: TOFACITINIB CITRATE
     Indication: RHEUMATOID ARTHRITIS
     Dosage: 11 MG, 1X/DAY

REACTIONS (5)
  - Fall [Not Recovered/Not Resolved]
  - Hand deformity [Not Recovered/Not Resolved]
  - Joint injury [Not Recovered/Not Resolved]
  - Addison^s disease [Unknown]
  - Stress [Unknown]

NARRATIVE: CASE EVENT DATE: 20190410
